FAERS Safety Report 10401330 (Version 1)
Quarter: 2014Q3

REPORT INFORMATION
  Report Type: Other
  Country: IT (occurrence: IT)
  Receive Date: 20140822
  Receipt Date: 20140822
  Transmission Date: 20150326
  Serious: No
  Sender: FDA-Public Use
  Company Number: IT-LUPIN PHARMACEUTICALS INC.-2014-01245

PATIENT
  Age: 35 Year
  Sex: Male

DRUGS (3)
  1. VALPROATE [Concomitant]
     Active Substance: VALPROATE SODIUM
     Indication: CONVULSION
     Route: 065
  2. OXCARBAZEPINE. [Concomitant]
     Active Substance: OXCARBAZEPINE
     Indication: CONVULSION
     Route: 065
  3. PREGABALIN. [Suspect]
     Active Substance: PREGABALIN
     Indication: CONVULSION
     Dosage: TITRATED UPTO 300MG
     Route: 065

REACTIONS (2)
  - Ejaculation delayed [Recovered/Resolved]
  - Anorgasmia [Recovered/Resolved]
